FAERS Safety Report 9142326 (Version 1)
Quarter: 2013Q1

REPORT INFORMATION
  Report Type: Spontaneous
  Country: DE (occurrence: DE)
  Receive Date: 20130306
  Receipt Date: 20130306
  Transmission Date: 20140127
  Serious: Yes (Life-Threatening, Hospitalization, Other)
  Sender: FDA-Public Use
  Company Number: DE-AMGEN-DEUSP2013014751

PATIENT
  Age: 61 Year
  Sex: Male
  Weight: 77 kg

DRUGS (3)
  1. ENBREL [Suspect]
     Indication: RHEUMATOID ARTHRITIS
     Dosage: 50 MG, 1 X WEEKLY
     Route: 058
     Dates: start: 200805, end: 201211
  2. METFORMIN HYDROCHLORIDE [Concomitant]
     Indication: DIABETES MELLITUS
     Dosage: UNK UNK, UNK
     Route: 048
  3. PREDNISOLONE [Concomitant]
     Indication: RHEUMATOID ARTHRITIS
     Dosage: 5 MG, UNK
     Route: 048
     Dates: start: 200808

REACTIONS (4)
  - Bronchial carcinoma [Unknown]
  - Adenocarcinoma [Unknown]
  - Bronchopneumonia [Unknown]
  - Infection [Unknown]
